FAERS Safety Report 17418076 (Version 1)
Quarter: 2020Q1

REPORT INFORMATION
  Report Type: Spontaneous
  Country: US (occurrence: US)
  Receive Date: 20200214
  Receipt Date: 20200214
  Transmission Date: 20200409
  Serious: No
  Sender: FDA-Public Use
  Company Number: US-TEVA-2020-US-1183544

PATIENT
  Age: 30 Year
  Sex: Female

DRUGS (1)
  1. ATOMOXETINE-TEVA [Suspect]
     Active Substance: ATOMOXETINE
     Indication: ATTENTION DEFICIT/HYPERACTIVITY DISORDER
     Route: 065
     Dates: start: 20200205

REACTIONS (7)
  - Drug ineffective [Unknown]
  - Hypoaesthesia oral [Unknown]
  - Feeling abnormal [Unknown]
  - Nausea [Unknown]
  - Paraesthesia [Unknown]
  - Feeling cold [Unknown]
  - Somnolence [Unknown]
